FAERS Safety Report 8218574-1 (Version None)
Quarter: 2012Q1

REPORT INFORMATION
  Report Type: 
  Country: None (occurrence: None)
  Receive Date: 20120319
  Receipt Date: 20120316
  Transmission Date: 20120608
  Serious: No
  Sender: FDA-Public Use
  Company Number: US-BAYER-2012-026339

PATIENT

DRUGS (2)
  1. CIPRO [Suspect]
  2. RIFAMPIN [Concomitant]

REACTIONS (1)
  - CONFUSIONAL STATE [None]
